FAERS Safety Report 25780990 (Version 2)
Quarter: 2025Q3

REPORT INFORMATION
  Report Type: Spontaneous
  Country: GB (occurrence: GB)
  Receive Date: 20250909
  Receipt Date: 20250912
  Transmission Date: 20251021
  Serious: Yes (Other)
  Sender: ELI LILLY AND COMPANY
  Company Number: None

PATIENT
  Age: 47 Year
  Sex: Female
  Weight: 61 kg

DRUGS (5)
  1. MOUNJARO [Interacting]
     Active Substance: TIRZEPATIDE
     Indication: Product used for unknown indication
     Route: 065
  2. ESTRADIOL [Interacting]
     Active Substance: ESTRADIOL
     Indication: Hormone replacement therapy
     Route: 065
  3. TESTOSTERONE [Interacting]
     Active Substance: TESTOSTERONE
     Indication: Hormone replacement therapy
     Route: 065
  4. FEXOFENADINE [Concomitant]
     Active Substance: FEXOFENADINE HYDROCHLORIDE
     Indication: Dry skin
  5. FEXOFENADINE [Concomitant]
     Active Substance: FEXOFENADINE HYDROCHLORIDE
     Indication: Hypersensitivity

REACTIONS (4)
  - Drug interaction [Recovered/Resolved]
  - Hot flush [Recovered/Resolved]
  - Libido decreased [Recovered/Resolved]
  - Vulvovaginal dryness [Recovered/Resolved]
